FAERS Safety Report 9211064 (Version 1)
Quarter: 2013Q2

REPORT INFORMATION
  Report Type: Other
  Country: NO (occurrence: NO)
  Receive Date: 20130404
  Receipt Date: 20130404
  Transmission Date: 20140414
  Serious: Yes (Other)
  Sender: FDA-Public Use
  Company Number: NO-NICOBRDEVP-2013-06058

PATIENT
  Sex: Female

DRUGS (2)
  1. LEVETIRACETAM (UNKNOWN) [Suspect]
     Indication: EPILEPSY
     Dosage: UNK
     Route: 065
  2. LAMOTRIGINE A [Concomitant]
     Indication: EPILEPSY
     Dosage: UNK
     Route: 065

REACTIONS (3)
  - Abortion induced [Unknown]
  - Pregnancy [Unknown]
  - Maternal exposure during pregnancy [Unknown]
